FAERS Safety Report 8478665-7 (Version None)
Quarter: 2012Q2

REPORT INFORMATION
  Report Type: 
  Country: None (occurrence: None)
  Receive Date: 20120629
  Receipt Date: 20120619
  Transmission Date: 20120825
  Serious: Yes (Other)
  Sender: FDA-Public Use
  Company Number: US-PERRIGO-12US003781

PATIENT
  Sex: Female
  Weight: 63.492 kg

DRUGS (1)
  1. NAPROXEN SODIUM [Suspect]
     Indication: PAIN IN EXTREMITY
     Dosage: 220 MG, EVERY 8 HOURS AS NEEDED
     Route: 048
     Dates: start: 20120328, end: 20120412

REACTIONS (6)
  - VASCULITIS [None]
  - PYREXIA [None]
  - RASH [None]
  - HENOCH-SCHONLEIN PURPURA [None]
  - JOINT SWELLING [None]
  - OEDEMA PERIPHERAL [None]
